FAERS Safety Report 7989322-5 (Version None)
Quarter: 2011Q4

REPORT INFORMATION
  Report Type: 
  Country: None (occurrence: None)
  Receive Date: 20111219
  Receipt Date: 20111212
  Transmission Date: 20120403
  Serious: Yes (Death)
  Sender: FDA-Public Use
  Company Number: US-CELGENEUS-163-21880-11121576

PATIENT
  Sex: Male

DRUGS (10)
  1. REVLIMID [Suspect]
     Indication: MULTIPLE MYELOMA
     Dosage: 15 MILLIGRAM
     Route: 048
     Dates: start: 20090811, end: 20090101
  2. REVLIMID [Suspect]
     Dosage: 25 MILLIGRAM
     Route: 048
     Dates: start: 20100501
  3. AMITRIPTYLINE HCL [Concomitant]
     Dosage: 100 MILLIGRAM
     Route: 065
  4. REVLIMID [Suspect]
     Dosage: 15 MILLIGRAM
     Route: 048
     Dates: start: 20110801, end: 20110912
  5. SENNA [Concomitant]
     Dosage: 15 MILLIGRAM
     Route: 065
  6. REVLIMID [Suspect]
     Dosage: 25 MILLIGRAM
     Route: 048
     Dates: start: 20110301
  7. LIPITOR [Concomitant]
     Dosage: 10 MILLIGRAM
     Route: 065
  8. PRADAXA [Concomitant]
     Dosage: 150 MILLIGRAM
     Route: 065
  9. SOTALOL HCL [Concomitant]
     Dosage: 80 MILLIGRAM
     Route: 065
  10. TRAMADOL HCL [Concomitant]
     Dosage: 50 MILLIGRAM
     Route: 065

REACTIONS (1)
  - DEATH [None]
